FAERS Safety Report 4878386-3 (Version None)
Quarter: 2005Q4

REPORT INFORMATION
  Report Type: 
  Country: None (occurrence: None)
  Receive Date: 20051209
  Receipt Date: 20050909
  Transmission Date: 20060501
  Serious: No
  Sender: FDA-Public Use
  Company Number: SUS1-2005-00675

PATIENT
  Age: 31 Year
  Sex: Male
  Weight: 101 kg

DRUGS (10)
  1. FOSRENOL [Suspect]
     Indication: HYPERPHOSPHATAEMIA
     Dosage: 500 MG, 2 TABLETS, 1 DOSE
     Dates: start: 20050811, end: 20050811
  2. ATENOLOL [Concomitant]
  3. COMBIVENT /GFR/ (SALBUTAMOL SULFATE, IPRATROPIUM BROMIDE) [Concomitant]
  4. SENSIPAR [Concomitant]
  5. ZESTRIL [Concomitant]
  6. MINOXIDIL [Concomitant]
  7. ZOLOFT [Concomitant]
  8. RENAL MULTI VITAMINS [Concomitant]
  9. RENAGEL [Concomitant]
  10. ACETYLSALICYLIC ACID [Concomitant]

REACTIONS (3)
  - HYPERSENSITIVITY [None]
  - PRURITUS [None]
  - SWELLING FACE [None]
